FAERS Safety Report 14103966 (Version 1)
Quarter: 2017Q4

REPORT INFORMATION
  Report Type: Spontaneous
  Country: AU (occurrence: AU)
  Receive Date: 20171018
  Receipt Date: 20171018
  Transmission Date: 20180321
  Serious: Yes (Other)
  Sender: FDA-Public Use
  Company Number: AU-ASTRAZENECA-2017SF04580

PATIENT
  Age: 13 Year
  Sex: Female

DRUGS (7)
  1. DEXAMETHASONE. [Concomitant]
     Active Substance: DEXAMETHASONE
  2. DOXYCYCLINE. [Concomitant]
     Active Substance: DOXYCYCLINE
     Indication: ATYPICAL PNEUMONIA
  3. CEFTRIAXONE. [Concomitant]
     Active Substance: CEFTRIAXONE
  4. OMEPRAZOLE. [Suspect]
     Active Substance: OMEPRAZOLE
     Route: 048
  5. HYDROXYCHLOROQUINE [Suspect]
     Active Substance: HYDROXYCHLOROQUINE
     Dosage: 400 MG, UNKNOWN
     Route: 065
     Dates: start: 20170318
  6. PREDNISOLONE. [Concomitant]
     Active Substance: PREDNISOLONE
  7. AUGMENTIN-DUO [Concomitant]
     Dates: start: 201611

REACTIONS (2)
  - Epiglottitis [Unknown]
  - Toxic epidermal necrolysis [Recovered/Resolved]

NARRATIVE: CASE EVENT DATE: 20170322
